FAERS Safety Report 13045905 (Version 1)
Quarter: 2016Q4

REPORT INFORMATION
  Report Type: Spontaneous
  Country: CA (occurrence: CA)
  Receive Date: 20161220
  Receipt Date: 20161220
  Transmission Date: 20170207
  Serious: Yes (Other)
  Sender: FDA-Public Use
  Company Number: CA-SA-2016SA230260

PATIENT
  Sex: Female

DRUGS (3)
  1. SULFASALAZINE. [Concomitant]
     Active Substance: SULFASALAZINE
     Route: 065
     Dates: start: 20120201, end: 20130502
  2. LEFLUNOMIDE. [Suspect]
     Active Substance: LEFLUNOMIDE
     Route: 048
     Dates: start: 20110607, end: 20131013
  3. HUMIRA [Concomitant]
     Active Substance: ADALIMUMAB
     Dosage: EVERY 2 WEEKS
     Route: 065
     Dates: start: 20120615, end: 20131003

REACTIONS (1)
  - Immune thrombocytopenic purpura [Unknown]
